FAERS Safety Report 4711017-1 (Version None)
Quarter: 2005Q3

REPORT INFORMATION
  Report Type: 
  Country: None (occurrence: None)
  Receive Date: 20050708
  Receipt Date: 20050627
  Transmission Date: 20060218
  Serious: Yes (Life-Threatening, Hospitalization)
  Sender: FDA-Public Use
  Company Number: OMPQ-NO-0506S-0846

PATIENT
  Age: 68 Year
  Sex: Male

DRUGS (2)
  1. OMNIPAQUE 300 [Suspect]
     Indication: BLADDER CANCER
     Dosage: 100 ML, SINGLE DOSE, I,V,
     Route: 042
     Dates: start: 20050602, end: 20050602
  2. OMNIPAQUE 300 [Suspect]
     Indication: CALCULUS URETERIC
     Dosage: 100 ML, SINGLE DOSE, I,V,
     Route: 042
     Dates: start: 20050602, end: 20050602

REACTIONS (13)
  - BLOOD PRESSURE SYSTOLIC DECREASED [None]
  - CERVICAL MYELOPATHY [None]
  - CHEST INJURY [None]
  - COUGH [None]
  - DIPLEGIA [None]
  - DYSPNOEA [None]
  - FALL [None]
  - LOSS OF CONSCIOUSNESS [None]
  - MOVEMENT DISORDER [None]
  - PARALYSIS [None]
  - POST PROCEDURAL COMPLICATION [None]
  - SENSORY DISTURBANCE [None]
  - SPINAL LIGAMENT OSSIFICATION [None]
